FAERS Safety Report 7500295-1 (Version None)
Quarter: 2011Q2

REPORT INFORMATION
  Report Type: 
  Country: None (occurrence: None)
  Receive Date: 20110524
  Receipt Date: 20101015
  Transmission Date: 20111010
  Serious: Yes (Hospitalization, Other)
  Sender: FDA-Public Use
  Company Number: TW-BAYER-201042199GPV

PATIENT
  Age: 54 Year
  Sex: Male
  Weight: 69 kg

DRUGS (47)
  1. BLINDED SORAFENIB (RAF KINASE INHIBITOR) [Suspect]
     Dosage: 150 MG (DAILY DOSE), , ORAL
     Route: 048
     Dates: start: 20100723, end: 20100902
  2. ESTAZOLAM [Concomitant]
     Dosage: 2 MG (DAILY DOSE), ,
     Dates: start: 20100805, end: 20100818
  3. SORAFENIB [Suspect]
     Indication: HEPATIC NEOPLASM MALIGNANT
     Route: 048
     Dates: start: 20100429, end: 20100614
  4. BLINDED SORAFENIB (RAF KINASE INHIBITOR) [Suspect]
     Dosage: 150 MG (DAILY DOSE), , ORAL
     Route: 048
     Dates: start: 20100903, end: 20100906
  5. MAGNESIUM OXIDE [Concomitant]
     Dosage: 500 MG (DAILY DOSE), ,
     Dates: start: 20100603, end: 20100609
  6. MAGNESIUM OXIDE [Concomitant]
     Dosage: 1500 MG (DAILY DOSE), ,
     Dates: start: 20100925
  7. ESTAZOLAM [Concomitant]
     Indication: INSOMNIA
     Dosage: 2 MG (DAILY DOSE), ,
     Dates: start: 20100705, end: 20100718
  8. BISACODYL [Concomitant]
     Dosage: 10 MG (DAILY DOSE), ,
     Dates: start: 20100923
  9. ZOLPIDEM [Concomitant]
     Indication: INSOMNIA
     Dosage: 10 MG (DAILY DOSE), ,
     Dates: start: 20100719, end: 20100922
  10. PANTOPRAZOLE [Concomitant]
     Dosage: 40 MG (DAILY DOSE), QD,
  11. SILYMARIN [Concomitant]
     Dosage: 210 MG (DAILY DOSE), ,
     Dates: start: 20100614, end: 20100618
  12. TRAMADOL HYDROCHLORIDE [Concomitant]
     Dosage: 100 MG (DAILY DOSE), ,
     Dates: start: 20100922, end: 20100922
  13. TRAMADOL HYDROCHLORIDE [Concomitant]
     Dosage: 200 MG (DAILY DOSE), ,
     Dates: start: 20100923, end: 20100930
  14. CLONAZEPAM [Concomitant]
     Indication: INSOMNIA
     Dosage: 2 MG (DAILY DOSE), ,
     Dates: start: 20100819, end: 20100922
  15. HALOPERIDOL [Concomitant]
     Dosage: 1 MG (DAILY DOSE), HS,
  16. GLYBURIDE [Concomitant]
     Indication: DIABETES MELLITUS
     Dosage: 5 MG (DAILY DOSE), QD,
     Dates: start: 20100419, end: 20100526
  17. GLYBURIDE [Concomitant]
     Dosage: 5 MG (DAILY DOSE), ,
     Dates: start: 20100503, end: 20100609
  18. MAGNESIUM OXIDE [Concomitant]
     Dosage: 750 MG (DAILY DOSE), ,
     Dates: start: 20100921, end: 20100924
  19. MORPHINE [Concomitant]
     Dosage: 10 MG (DAILY DOSE), ,
     Dates: start: 20100513, end: 20100519
  20. ATIVAN [Concomitant]
     Indication: INSOMNIA
     Dosage: 0.5 MG (DAILY DOSE), ,
     Dates: start: 20100614, end: 20100620
  21. METOCLOPRAMIDE [Concomitant]
     Indication: VOMITING
     Dosage: 10 MG (DAILY DOSE), ,
     Dates: start: 20100917, end: 20100922
  22. METOCLOPRAMIDE [Concomitant]
     Dosage: 30 MG (DAILY DOSE), ,
     Dates: start: 20100923, end: 20100925
  23. GRANISETRON HCL [Concomitant]
     Dosage: 1 MG (DAILY DOSE), QD,
  24. SORAFENIB [Suspect]
     Route: 048
     Dates: start: 20100615, end: 20100722
  25. BLINDED SORAFENIB (RAF KINASE INHIBITOR) [Suspect]
     Indication: THROMBOSIS PROPHYLAXIS
     Dosage: 150 MG (DAILY DOSE), QD, ORAL
     Route: 048
     Dates: start: 20100429, end: 20100614
  26. SILYMARIN [Concomitant]
     Indication: HEPATITIS B
     Dosage: 210 MG (DAILY DOSE), QD,
     Dates: start: 20100416, end: 20100526
  27. SILYMARIN [Concomitant]
     Dates: start: 20100909, end: 20100922
  28. TRAMADOL HYDROCHLORIDE [Concomitant]
     Dosage: 300 MG (DAILY DOSE), ,
     Dates: start: 20100614, end: 20100618
  29. TELBIVUDINE [Concomitant]
     Dosage: 600 MG (DAILY DOSE), QD,
  30. SORAFENIB [Suspect]
     Route: 048
     Dates: start: 20100723, end: 20100902
  31. SORAFENIB [Suspect]
     Route: 048
     Dates: start: 20100903, end: 20100906
  32. MAGNESIUM OXIDE [Concomitant]
     Indication: CONSTIPATION
     Dosage: 750 MG (DAILY DOSE), ,
     Dates: start: 20100422, end: 20100512
  33. MAGNESIUM OXIDE [Concomitant]
     Dosage: 500 MG (DAILY DOSE), ,
     Dates: start: 20100513, end: 20100526
  34. TRAMADOL HYDROCHLORIDE [Concomitant]
     Dosage: 300 MG (DAILY DOSE), ,
     Dates: start: 20100909, end: 20100921
  35. MORPHINE [Concomitant]
     Indication: ABDOMINAL PAIN
     Dosage: 10 MG (DAILY DOSE), PRN,
     Dates: start: 20100603, end: 20100609
  36. BLINDED SORAFENIB (RAF KINASE INHIBITOR) [Suspect]
     Dosage: 150 MG (DAILY DOSE), QD, ORAL
     Route: 048
     Dates: start: 20100615, end: 20100722
  37. GLYBURIDE [Concomitant]
     Dosage: 5 MG (DAILY DOSE), ,
     Dates: start: 20100601, end: 20100618
  38. BUPRENORPHINE [Concomitant]
     Indication: ABDOMINAL PAIN
     Dosage: 0.2 MG (DAILY DOSE), PRN,
     Dates: start: 20100422, end: 20100505
  39. MAGNESIUM OXIDE [Concomitant]
     Dates: start: 20100614, end: 20100718
  40. TRAMADOL HYDROCHLORIDE [Concomitant]
     Dosage: 300 MG (DAILY DOSE), ,
     Dates: start: 20100603, end: 20100609
  41. ATIVAN [Concomitant]
     Dosage: 2 MG (DAILY DOSE), ,
     Dates: start: 20100621, end: 20100704
  42. BISACODYL [Concomitant]
     Indication: CONSTIPATION
     Dosage: 10 MG (DAILY DOSE), ,
     Dates: start: 20100920, end: 20100921
  43. LACTULOSE [Concomitant]
     Indication: CONSTIPATION
     Route: 048
     Dates: start: 20100930
  44. SILYMARIN [Concomitant]
     Dosage: 210 MG (DAILY DOSE), ,
     Dates: start: 20100603, end: 20100609
  45. SILYMARIN [Concomitant]
     Dates: start: 20100930
  46. TRAMADOL HYDROCHLORIDE [Concomitant]
     Indication: ABDOMINAL PAIN
     Dosage: 200 MG (DAILY DOSE), QD,
     Dates: start: 20100422, end: 20100428
  47. MORPHINE [Concomitant]
     Dosage: 3 MG (DAILY DOSE), ,
     Dates: start: 20100922, end: 20100922

REACTIONS (3)
  - GASTRIC ULCER [None]
  - URINARY TRACT INFECTION [None]
  - VARICES OESOPHAGEAL [None]
